FAERS Safety Report 5274915-9 (Version None)
Quarter: 2007Q1

REPORT INFORMATION
  Report Type: 
  Country: None (occurrence: None)
  Receive Date: 20061208
  Receipt Date: 20060511
  Transmission Date: 20070707
  Serious: Yes (Hospitalization)
  Sender: FDA-Public Use
  Company Number: 2006UW07563

PATIENT
  Age: 75 Year
  Sex: Female

DRUGS (4)
  1. CRESTOR [Suspect]
     Dosage: 10 MG PO
     Route: 048
     Dates: start: 20060329
  2. LIPITOR [Concomitant]
  3. ANTIDIABETIC MEDICATION [Concomitant]
  4. ANTIHYPERTENSIVE MEDICATION [Concomitant]

REACTIONS (2)
  - MUSCULAR WEAKNESS [None]
  - MYOPATHY [None]
